FAERS Safety Report 12462568 (Version 1)
Quarter: 2016Q2

REPORT INFORMATION
  Report Type: Spontaneous
  Country: US (occurrence: US)
  Receive Date: 20160614
  Receipt Date: 20160614
  Transmission Date: 20160815
  Serious: Yes (Other)
  Sender: FDA-Public Use
  Company Number: US-ROCHE-1774033

PATIENT
  Age: 39 Year
  Sex: Female

DRUGS (2)
  1. EPINEPHRINE. [Concomitant]
     Active Substance: EPINEPHRINE
  2. XOLAIR [Suspect]
     Active Substance: OMALIZUMAB
     Indication: ASTHMA
     Route: 058
     Dates: start: 20150815, end: 20160505

REACTIONS (2)
  - Anaphylactic reaction [Recovered/Resolved with Sequelae]
  - Dizziness [Recovering/Resolving]

NARRATIVE: CASE EVENT DATE: 20160505
